FAERS Safety Report 7646518-X (Version None)
Quarter: 2011Q3

REPORT INFORMATION
  Report Type: 
  Country: None (occurrence: None)
  Receive Date: 20110725
  Receipt Date: 20110707
  Transmission Date: 20111222
  Serious: Yes (Other)
  Sender: FDA-Public Use
  Company Number: JHP201100353

PATIENT
  Age: 17 Year
  Sex: Male

DRUGS (12)
  1. FENTANYL [Concomitant]
  2. DIAZEPAM [Concomitant]
  3. VECURONIUM BROMIDE [Concomitant]
  4. LIDOCAINE (LIDOCAINE HYDROCHLORIDE) [Concomitant]
  5. DANTROLENE SODIUM [Suspect]
     Indication: HYPERTHERMIA MALIGNANT
     Dosage: 220 MG, TOTAL, INTRAVENOUS
     Route: 042
  6. ISOFLURANE (ISSOFLURANE) [Concomitant]
  7. INSULIN (INSULIN) [Concomitant]
  8. ZANTAC [Concomitant]
  9. DEXTROSE 5% [Concomitant]
  10. BICARBONATE (SODIUM BICARBONATE) [Concomitant]
  11. THIOPENTAL (THIOPENTAL SODIUM) [Concomitant]
  12. SUCCINYLCHOLINE CHLORIDE [Concomitant]

REACTIONS (1)
  - HYPERKALAEMIA [None]
